FAERS Safety Report 5247567-1 (Version None)
Quarter: 2007Q1

REPORT INFORMATION
  Report Type: 
  Country: None (occurrence: None)
  Receive Date: 20070227
  Receipt Date: 20070215
  Transmission Date: 20070707
  Serious: Yes (Other)
  Sender: FDA-Public Use
  Company Number: PHBS2007DK03172

PATIENT
  Sex: Male

DRUGS (2)
  1. RITALIN UNO [Suspect]
     Indication: ATTENTION DEFICIT/HYPERACTIVITY DISORDER
     Dosage: 40 MG/DAY
     Dates: start: 20020801
  2. RITALIN [Suspect]
     Indication: ATTENTION DEFICIT/HYPERACTIVITY DISORDER
     Dosage: 10 MG, PRN

REACTIONS (3)
  - DRUG ABUSER [None]
  - EUPHORIC MOOD [None]
  - INSOMNIA [None]
